FAERS Safety Report 4424944-X (Version None)
Quarter: 2004Q3

REPORT INFORMATION
  Report Type: 
  Country: None (occurrence: None)
  Receive Date: 20040812
  Receipt Date: 20040706
  Transmission Date: 20050211
  Serious: Yes (Other)
  Sender: FDA-Public Use
  Company Number: PHEH2004US07255

PATIENT
  Age: 44 Year
  Sex: Male
  Weight: 87 kg

DRUGS (4)
  1. TRILEPTAL [Suspect]
     Indication: COMPLEX PARTIAL SEIZURES
     Dosage: 900 MG, BID
     Route: 048
     Dates: start: 20031201
  2. TRILEPTAL [Suspect]
     Dosage: UNK, UNK
  3. DILANTIN [Concomitant]
     Dates: start: 20030101, end: 20020501
  4. VIAGRA [Concomitant]
     Dosage: 100 MG, PRN
     Route: 048

REACTIONS (7)
  - ABDOMINAL PAIN [None]
  - BACK PAIN [None]
  - BALANCE DISORDER [None]
  - EXTRASYSTOLES [None]
  - HEADACHE [None]
  - PALPITATIONS [None]
  - WEIGHT INCREASED [None]
